FAERS Safety Report 8611823-7 (Version None)
Quarter: 2012Q3

REPORT INFORMATION
  Report Type: 
  Country: None (occurrence: None)
  Receive Date: 20120822
  Receipt Date: 20120820
  Transmission Date: 20120928
  Serious: Yes (Other)
  Sender: FDA-Public Use
  Company Number: CA-ROCHE-1104669

PATIENT
  Age: 66 Year
  Sex: Female

DRUGS (3)
  1. ATIVAN [Concomitant]
     Route: 065
  2. TYKERB [Suspect]
     Indication: PRODUCT USED FOR UNKNOWN INDICATION
     Route: 048
  3. CAPECITABINE [Suspect]
     Indication: PRODUCT USED FOR UNKNOWN INDICATION
     Route: 065

REACTIONS (6)
  - BREAST CANCER [None]
  - DIARRHOEA [None]
  - EAR INFECTION [None]
  - NEOPLASM MALIGNANT [None]
  - DIZZINESS [None]
  - DEHYDRATION [None]
